FAERS Safety Report 4996348-2 (Version None)
Quarter: 2006Q2

REPORT INFORMATION
  Report Type: 
  Country: None (occurrence: None)
  Receive Date: 20060509
  Receipt Date: 20060425
  Transmission Date: 20061013
  Serious: Yes (Hospitalization)
  Sender: FDA-Public Use
  Company Number: DE-AMGEN-UK177603

PATIENT

DRUGS (4)
  1. ARANESP [Suspect]
     Indication: ANAEMIA OF MALIGNANT DISEASE
     Route: 042
     Dates: start: 20060213, end: 20060213
  2. DOXORUBICIN HCL [Suspect]
     Route: 042
     Dates: start: 20060213, end: 20060213
  3. CYCLOPHOSPHAMIDE [Suspect]
     Route: 042
     Dates: start: 20060213, end: 20060213
  4. DOCETAXEL [Suspect]
     Route: 042
     Dates: start: 20060213, end: 20060213

REACTIONS (4)
  - CHILLS [None]
  - ERYSIPELAS [None]
  - GENERAL PHYSICAL CONDITION ABNORMAL [None]
  - PYREXIA [None]
